FAERS Safety Report 7837812-8 (Version None)
Quarter: 2011Q4

REPORT INFORMATION
  Report Type: 
  Country: None (occurrence: None)
  Receive Date: 20111024
  Receipt Date: 20111020
  Transmission Date: 20120403
  Serious: Yes (Hospitalization)
  Sender: FDA-Public Use
  Company Number: ES-BAYER-2011-101545

PATIENT
  Age: 80 Year
  Sex: Male

DRUGS (1)
  1. MOXIFLOXACIN [Suspect]
     Dosage: 400 MG, HS
     Route: 065
     Dates: start: 20110401, end: 20110407

REACTIONS (2)
  - HAEMATOCHEZIA [None]
  - COLITIS [None]
